FAERS Safety Report 6974753-2 (Version None)
Quarter: 2010Q3

REPORT INFORMATION
  Report Type: 
  Country: None (occurrence: None)
  Receive Date: 20100909
  Receipt Date: 20081217
  Transmission Date: 20110219
  Serious: No
  Sender: FDA-Public Use
  Company Number: US-WYE-H07352608

PATIENT
  Sex: Female
  Weight: 60.38 kg

DRUGS (6)
  1. PRISTIQ [Suspect]
     Indication: DEPRESSION
     Route: 048
     Dates: start: 20081126
  2. PRISTIQ [Suspect]
     Indication: PAIN
  3. ACETAMINOPHEN WITH PROPOXYPHENE HCL TAB [Concomitant]
  4. PROVIGIL [Concomitant]
  5. SERTRALINE HYDROCHLORIDE [Concomitant]
  6. TRAMADOL HYDROCHLORIDE [Concomitant]

REACTIONS (8)
  - CONSTIPATION [None]
  - DIZZINESS [None]
  - DYSPNOEA [None]
  - FLUSHING [None]
  - IRRITABILITY [None]
  - NASAL CONGESTION [None]
  - NAUSEA [None]
  - VERTIGO [None]
